FAERS Safety Report 24014472 (Version 6)
Quarter: 2024Q3

REPORT INFORMATION
  Report Type: Spontaneous
  Country: US (occurrence: US)
  Receive Date: 20240626
  Receipt Date: 20240823
  Transmission Date: 20241016
  Serious: Yes (Hospitalization, Other)
  Sender: ALKERMES
  Company Number: US-ALKERMES INC.-ALK-2024-001701

PATIENT
  Age: 33 Year
  Sex: Male

DRUGS (13)
  1. VIVITROL [Suspect]
     Active Substance: NALTREXONE
     Indication: Alcohol use disorder
     Dosage: 380 MILLIGRAM, Q28D
     Route: 030
     Dates: start: 20221115
  2. VIVITROL [Suspect]
     Active Substance: NALTREXONE
     Indication: Alcoholism
  3. FOLVITE [Concomitant]
     Active Substance: FOLIC ACID
     Indication: Product used for unknown indication
     Dosage: 1 MILLIGRAM, QD
     Route: 048
     Dates: start: 20240611
  4. PRILOSEC [Concomitant]
     Active Substance: OMEPRAZOLE MAGNESIUM
     Indication: Product used for unknown indication
     Dosage: 40 MILLIGRAM, BID FOR 8 WEEKS THEN QD
     Route: 048
     Dates: start: 20240611
  5. COREG [Concomitant]
     Active Substance: CARVEDILOL
     Indication: Product used for unknown indication
     Dosage: 12.5 MILLIGRAM, 2 TABS BID
     Route: 048
     Dates: start: 20240611
  6. CALCIUM CARBONATE [Concomitant]
     Active Substance: CALCIUM CARBONATE
     Indication: Dyspepsia
     Dosage: 500 MILLIGRAM, 2 TABS Q4H AS NEEDED FOR HEARTBURN
     Route: 048
     Dates: start: 20240611
  7. FLONASE [Concomitant]
     Active Substance: FLUTICASONE PROPIONATE
     Indication: Hypersensitivity
     Dosage: 50 MICROGRAM, BID AS NEEDED
     Route: 045
     Dates: start: 20240606
  8. LIALDA [Concomitant]
     Active Substance: MESALAMINE
     Indication: Colitis ulcerative
     Dosage: 1.2 MILLIGRAM, 4 TABLETS QD
     Route: 048
     Dates: start: 20240503
  9. ALBUTEROL SULFATE [Concomitant]
     Active Substance: ALBUTEROL SULFATE
     Indication: Wheezing
     Dosage: 90 MCG (2 PUFFS) EVERY Q6H AS NEEDED
     Dates: start: 20240313
  10. CATAPRES [Concomitant]
     Active Substance: CLONIDINE HYDROCHLORIDE
     Indication: Product used for unknown indication
     Dosage: 0.2 MILLIGRAM, 2 TABS BID
     Dates: start: 20240206
  11. PARNATE [Concomitant]
     Active Substance: TRANYLCYPROMINE SULFATE
     Indication: Product used for unknown indication
     Dosage: 10 MILLIGRAM, 6 TABS QD
     Route: 048
     Dates: start: 20231205
  12. PROPECIA [Concomitant]
     Active Substance: FINASTERIDE
     Indication: Product used for unknown indication
     Dosage: 1 MILLIGRAM, QD
     Route: 048
     Dates: start: 20221107
  13. TYLENOL [Concomitant]
     Active Substance: ACETAMINOPHEN
     Indication: Pain
     Dosage: 325 MILLIGRAM, 2 TABS Q6H AS NEEDED
     Route: 048
     Dates: start: 20211116

REACTIONS (5)
  - Gastrointestinal haemorrhage [Recovered/Resolved]
  - Hypokalaemia [Recovered/Resolved]
  - Nausea [Recovered/Resolved]
  - Vomiting [Recovered/Resolved]
  - Alcoholism [Recovered/Resolved]

NARRATIVE: CASE EVENT DATE: 20240101
